FAERS Safety Report 25539258 (Version 1)
Quarter: 2025Q3

REPORT INFORMATION
  Report Type: Spontaneous
  Country: US (occurrence: US)
  Receive Date: 20250710
  Receipt Date: 20250710
  Transmission Date: 20251020
  Serious: Yes (Hospitalization, Other)
  Sender: AUROBINDO
  Company Number: US-AUROBINDO-AUR-APL-2025-035223

PATIENT
  Age: 53 Year
  Sex: Female

DRUGS (5)
  1. ARIPIPRAZOLE [Suspect]
     Active Substance: ARIPIPRAZOLE
     Indication: Bipolar I disorder
     Dosage: 20 MILLIGRAM, ONCE A DAY
     Route: 065
  2. GLYCOPYRROLATE [Suspect]
     Active Substance: GLYCOPYRROLATE
     Indication: Salivary hypersecretion
     Route: 065
  3. SCOPOLAMINE [Suspect]
     Active Substance: SCOPOLAMINE
     Indication: Salivary hypersecretion
     Route: 065
  4. ATROPINE [Suspect]
     Active Substance: ATROPINE
     Indication: Salivary hypersecretion
     Route: 060
  5. LITHIUM [Concomitant]
     Active Substance: LITHIUM
     Indication: Bipolar I disorder
     Dosage: 450 MILLIGRAM, TWO TIMES A DAY
     Route: 065

REACTIONS (2)
  - Salivary hypersecretion [Recovered/Resolved]
  - Drug ineffective [Unknown]
